FAERS Safety Report 10137612 (Version 1)
Quarter: 2014Q2

REPORT INFORMATION
  Report Type: Spontaneous
  Country: US (occurrence: None)
  Receive Date: 20140428
  Receipt Date: 20140428
  Transmission Date: 20141212
  Serious: Yes (Other)
  Sender: FDA-Public Use
  Company Number: None

PATIENT
  Age: 45 Year
  Sex: 0

DRUGS (1)
  1. ADDERAL [Suspect]
     Indication: DISTURBANCE IN ATTENTION
     Dosage: 2X^S DAILY, TWICE DAILY, TAKEN BY MOUTH
     Route: 048
     Dates: start: 20140201, end: 20140331

REACTIONS (1)
  - Abnormal behaviour [None]
